FAERS Safety Report 5173627-X (Version None)
Quarter: 2006Q4

REPORT INFORMATION
  Report Type: 
  Country: None (occurrence: None)
  Receive Date: 20061214
  Receipt Date: 20060623
  Transmission Date: 20070319
  Serious: Yes (Other)
  Sender: FDA-Public Use
  Company Number: BE-ELI_LILLY_AND_COMPANY-BE200606005023

PATIENT
  Age: 39 Year
  Sex: Female

DRUGS (6)
  1. CYMBALTA [Suspect]
     Indication: FIBROMYALGIA
     Dosage: 60 MG, DAILY (1/D)
     Route: 048
     Dates: start: 20060404, end: 20060404
  2. EFFEXOR [Concomitant]
     Dosage: 75 MG, UNK
  3. EFFEXOR [Concomitant]
     Dosage: 150 MG, UNK
  4. CONTRAMAL [Concomitant]
  5. NUROFEN [Concomitant]
  6. INDERAL [Concomitant]

REACTIONS (4)
  - BRONCHOSPASM [None]
  - ORTHOSTATIC HYPOTENSION [None]
  - PARAESTHESIA [None]
  - TACHYCARDIA [None]
